FAERS Safety Report 5953320-3 (Version None)
Quarter: 2008Q4

REPORT INFORMATION
  Report Type: 
  Country: None (occurrence: None)
  Receive Date: 20081114
  Receipt Date: 20081105
  Transmission Date: 20090506
  Serious: Yes (Other)
  Sender: FDA-Public Use
  Company Number: US-JNJFOC-20081101633

PATIENT
  Age: 30 Month
  Sex: Female
  Weight: 15.88 kg

DRUGS (2)
  1. CHILDRENS TYLENOL PLUS COLD GRAPE [Suspect]
     Indication: NASOPHARYNGITIS
     Route: 048
  2. SULFAMETHOXAZOLE [Concomitant]
     Indication: PROPHYLAXIS

REACTIONS (4)
  - HALLUCINATION [None]
  - RASH [None]
  - WHEEZING [None]
  - WRONG DRUG ADMINISTERED [None]
